FAERS Safety Report 17043787 (Version 1)
Quarter: 2019Q4

REPORT INFORMATION
  Report Type: Spontaneous
  Country: US (occurrence: US)
  Receive Date: 20191017
  Receipt Date: 20191017
  Transmission Date: 20200122
  Serious: Yes (Hospitalization)
  Sender: FDA-Public Use
  Company Number: None

PATIENT
  Age: 81 Year
  Sex: Male
  Weight: 61.69 kg

DRUGS (1)
  1. ASPIRIN. [Suspect]
     Active Substance: ASPIRIN
     Indication: PRODUCT USED FOR UNKNOWN INDICATION
     Route: 048

REACTIONS (8)
  - Weight decreased [None]
  - Diarrhoea [None]
  - Fall [None]
  - Dyspnoea [None]
  - Iron deficiency anaemia [None]
  - Haematochezia [None]
  - Dizziness [None]
  - Occult blood positive [None]

NARRATIVE: CASE EVENT DATE: 20190717
